FAERS Safety Report 7113136-1 (Version None)
Quarter: 2010Q4

REPORT INFORMATION
  Report Type: 
  Country: None (occurrence: None)
  Receive Date: 20101119
  Receipt Date: 20101109
  Transmission Date: 20110411
  Serious: Yes (Other)
  Sender: FDA-Public Use
  Company Number: US-JNJFOC-20101103426

PATIENT
  Sex: Female
  Weight: 65.77 kg

DRUGS (2)
  1. REMICADE [Suspect]
     Indication: CROHN'S DISEASE
     Route: 042
  2. IMODIUM [Concomitant]
     Indication: DIARRHOEA
     Route: 048

REACTIONS (3)
  - GASTRIC DISORDER [None]
  - LUPUS-LIKE SYNDROME [None]
  - RASH GENERALISED [None]
